FAERS Safety Report 9166684 (Version 4)
Quarter: 2013Q2

REPORT INFORMATION
  Report Type: Spontaneous
  Country: US (occurrence: US)
  Receive Date: 20130315
  Receipt Date: 20130618
  Transmission Date: 20140414
  Serious: No
  Sender: FDA-Public Use
  Company Number: US-009507513-1303USA006424

PATIENT
  Sex: Female
  Weight: 46.71 kg

DRUGS (1)
  1. IMPLANON [Suspect]
     Indication: CONTRACEPTION
     Dosage: 1 DF, UNK
     Route: 059
     Dates: start: 20100318, end: 20130528

REACTIONS (6)
  - Medical device complication [Recovered/Resolved]
  - Device dislocation [Recovered/Resolved]
  - Device kink [Recovered/Resolved]
  - Incorrect drug administration duration [Recovered/Resolved]
  - Device deployment issue [Unknown]
  - No adverse event [Unknown]
